FAERS Safety Report 8178519-X (Version None)
Quarter: 2012Q1

REPORT INFORMATION
  Report Type: 
  Country: None (occurrence: None)
  Receive Date: 20120301
  Receipt Date: 20120223
  Transmission Date: 20120608
  Serious: Yes (Other)
  Sender: FDA-Public Use
  Company Number: PHHY2012GB015594

PATIENT
  Age: 55 Year
  Sex: Female
  Weight: 91.5 kg

DRUGS (1)
  1. SIMVASTATIN [Suspect]
     Indication: TYPE 2 DIABETES MELLITUS
     Dosage: 20 MG, UNK
     Dates: start: 20060406, end: 20120102

REACTIONS (2)
  - AMNESIA [None]
  - FATIGUE [None]
